FAERS Safety Report 8103641-3 (Version None)
Quarter: 2012Q1

REPORT INFORMATION
  Report Type: 
  Country: None (occurrence: None)
  Receive Date: 20120201
  Receipt Date: 20120125
  Transmission Date: 20120608
  Serious: Yes (Hospitalization)
  Sender: FDA-Public Use
  Company Number: AU-B.I. PHARMACEUTICALS,INC./RIDGEFIELD-2012-AU-00143AU

PATIENT
  Age: 88 Year
  Sex: Female

DRUGS (1)
  1. PRADAXA [Suspect]
     Indication: CARDIAC DISORDER
     Dosage: 300 MG

REACTIONS (1)
  - FALL [None]
